FAERS Safety Report 12611734 (Version 1)
Quarter: 2016Q3

REPORT INFORMATION
  Report Type: Not Available
  Country: GB (occurrence: GB)
  Receive Date: 20160801
  Receipt Date: 20160801
  Transmission Date: 20161109
  Serious: Yes (Hospitalization)
  Sender: FDA-Public Use
  Company Number: GB-SYNTHON BV-NL01PV16_41542

PATIENT
  Sex: Male

DRUGS (21)
  1. DOCUSATE [Concomitant]
     Active Substance: DOCUSATE
     Dosage: UNK
  2. GLYCERYL TRINITRATE [Concomitant]
     Active Substance: NITROGLYCERIN
     Dosage: UNK
  3. LIDOCAINE. [Concomitant]
     Active Substance: LIDOCAINE
     Dosage: UNK
  4. SALBUTAMOL [Concomitant]
     Active Substance: ALBUTEROL
     Dosage: UNK
  5. THIAMINE. [Concomitant]
     Active Substance: THIAMINE
     Dosage: UNK
  6. MIRTAZAPINE. [Concomitant]
     Active Substance: MIRTAZAPINE
     Dosage: UNK
  7. DIAZEPAM. [Suspect]
     Active Substance: DIAZEPAM
     Dosage: 2 MG, QD, AT NIGHT
     Route: 048
  8. SYMBICORT [Concomitant]
     Active Substance: BUDESONIDE\FORMOTEROL FUMARATE DIHYDRATE
     Dosage: UNK
  9. OXYCODONE [Suspect]
     Active Substance: OXYCODONE
     Dosage: 15 MG, BID
     Route: 048
  10. OXYCODONE [Suspect]
     Active Substance: OXYCODONE
     Dosage: 10 MG, AS NECESSARY (ADDITIONAL 10 MG EVERY 4 HOURS)
     Route: 048
  11. ASPIRIN                            /00002701/ [Concomitant]
     Active Substance: ASPIRIN
     Dosage: UNK
  12. TAMSULOSIN [Suspect]
     Active Substance: TAMSULOSIN
     Dosage: 400 ?G, QD
     Route: 048
  13. CARBOCISTEINE [Concomitant]
     Active Substance: CARBOCYSTEINE
     Dosage: UNK
  14. OMEPRAZOLE. [Concomitant]
     Active Substance: OMEPRAZOLE
     Dosage: UNK
  15. PARACETAMOL [Concomitant]
     Active Substance: ACETAMINOPHEN
     Dosage: UNK
  16. SENNA                              /00142201/ [Concomitant]
     Active Substance: SENNA LEAF
     Dosage: UNK
  17. ATORVASTATIN [Concomitant]
     Active Substance: ATORVASTATIN
     Dosage: UNK
  18. PREGABALIN. [Suspect]
     Active Substance: PREGABALIN
     Dosage: 75 MG, BID
     Route: 048
  19. TRAZODONE [Suspect]
     Active Substance: TRAZODONE HYDROCHLORIDE
     Dosage: 100 MG, QD, AT NIGHT
     Route: 048
  20. AZITHROMYCIN ANHYDROUS. [Concomitant]
     Active Substance: AZITHROMYCIN ANHYDROUS
     Dosage: UNK
  21. MOVICOL [Concomitant]
     Active Substance: POLYETHYLENE GLYCOL 3350\POTASSIUM CHLORIDE\SODIUM BICARBONATE\SODIUM CHLORIDE
     Dosage: UNK

REACTIONS (2)
  - Circulatory collapse [Recovered/Resolved]
  - Somnolence [Recovered/Resolved]
